FAERS Safety Report 5534877-3 (Version None)
Quarter: 2007Q4

REPORT INFORMATION
  Report Type: 
  Country: None (occurrence: None)
  Receive Date: 20071205
  Receipt Date: 20071129
  Transmission Date: 20080405
  Serious: Yes (Other)
  Sender: FDA-Public Use
  Company Number: JP-BOEHRINGER INGELHEIM PHARMACEUTICALS, INC.-2007-BP-21853NB

PATIENT
  Sex: Male
  Weight: 52 kg

DRUGS (7)
  1. MICARDIS [Suspect]
     Indication: HYPERTENSION
     Route: 048
     Dates: start: 20060822
  2. LASIX [Concomitant]
     Route: 048
  3. CONIEL [Concomitant]
     Route: 048
  4. JUVELA N (TOCEPHEROL NICOTINANTE) [Concomitant]
     Route: 048
  5. ALLOPURINOL [Concomitant]
     Route: 048
  6. URALYT (POTASSIUM CITRATE_SODIUM CITRATE) [Concomitant]
     Route: 048
  7. KREMEZIN [Concomitant]
     Route: 048

REACTIONS (1)
  - AORTIC VALVE INCOMPETENCE [None]
